FAERS Safety Report 9158598 (Version 1)
Quarter: 2013Q1

REPORT INFORMATION
  Report Type: Spontaneous
  Country: IT (occurrence: IT)
  Receive Date: 20130312
  Receipt Date: 20130312
  Transmission Date: 20140127
  Serious: Yes (Hospitalization)
  Sender: FDA-Public Use
  Company Number: IT-EISAI INC-E3810-06297-SPO-IT

PATIENT
  Age: 55 Year
  Sex: Female

DRUGS (2)
  1. ACIPHEX (RABEPRAZOLE) [Suspect]
     Dosage: UNKNOWN
     Route: 048
     Dates: start: 20121121, end: 20121205
  2. CLOPIDOGREL [Suspect]
     Dosage: UNKNOWN
     Route: 048
     Dates: start: 20121121, end: 20121205

REACTIONS (3)
  - Presyncope [Recovered/Resolved]
  - Pruritus [Recovered/Resolved]
  - Rash erythematous [Recovered/Resolved]
